FAERS Safety Report 8229321-1 (Version None)
Quarter: 2012Q1

REPORT INFORMATION
  Report Type: 
  Country: None (occurrence: None)
  Receive Date: 20120322
  Receipt Date: 20120320
  Transmission Date: 20120608
  Serious: Yes (Hospitalization)
  Sender: FDA-Public Use
  Company Number: CO-BIOMARINP-002369

PATIENT
  Age: 9 Year
  Sex: Female
  Weight: 18 kg

DRUGS (3)
  1. NAGLAZYME [Suspect]
     Indication: MUCOPOLYSACCHARIDOSIS VI
     Route: 041
     Dates: start: 20110527
  2. IPRATROPIUM BROMIDE [Concomitant]
  3. ORAL AMOXICILLIN [Concomitant]

REACTIONS (1)
  - BRONCHIAL OBSTRUCTION [None]
